FAERS Safety Report 13871219 (Version 1)
Quarter: 2017Q3

REPORT INFORMATION
  Report Type: Spontaneous
  Country: US (occurrence: US)
  Receive Date: 20170814
  Receipt Date: 20170814
  Transmission Date: 20171127
  Serious: Yes (Disabling, Other)
  Sender: FDA-Public Use
  Company Number: None

PATIENT
  Age: 71 Year
  Sex: Female
  Weight: 75.15 kg

DRUGS (9)
  1. TRIAMCINALONE [Suspect]
     Active Substance: TRIAMCINOLONE
     Indication: CATARACT
     Route: 031
     Dates: start: 20170727, end: 20170727
  2. STOOL SOFTNER [Concomitant]
  3. HCTZ [Concomitant]
     Active Substance: HYDROCHLOROTHIAZIDE
  4. ALPRAZOLAM. [Concomitant]
     Active Substance: ALPRAZOLAM
  5. ZINC. [Concomitant]
     Active Substance: ZINC
  6. ESTROPIPATE. [Concomitant]
     Active Substance: ESTROPIPATE
  7. MOXIFLOXACIN. [Suspect]
     Active Substance: MOXIFLOXACIN
     Indication: CATARACT
     Route: 031
     Dates: start: 20170810, end: 20170810
  8. VANCOMYCIN [Suspect]
     Active Substance: VANCOMYCIN
  9. PRILOSEC [Concomitant]
     Active Substance: OMEPRAZOLE MAGNESIUM

REACTIONS (2)
  - Retinal vasculitis [None]
  - Retinal haemorrhage [None]

NARRATIVE: CASE EVENT DATE: 20170811
